FAERS Safety Report 4494066-0 (Version None)
Quarter: 2004Q4

REPORT INFORMATION
  Report Type: 
  Country: None (occurrence: None)
  Receive Date: 20041105
  Receipt Date: 20041007
  Transmission Date: 20050328
  Serious: Yes (Hospitalization, Disabling, Other)
  Sender: FDA-Public Use
  Company Number: US-MERCK-0410USA01054

PATIENT
  Age: 88 Year
  Sex: Male
  Weight: 77 kg

DRUGS (9)
  1. ZOCOR [Suspect]
     Indication: HYPERCHOLESTEROLAEMIA
     Route: 048
     Dates: start: 20030818, end: 20040923
  2. AMIODARONE [Suspect]
     Route: 065
     Dates: end: 20040923
  3. LASIX [Concomitant]
     Route: 065
  4. ASPIRIN [Concomitant]
     Route: 065
  5. COUMADIN [Concomitant]
     Route: 065
     Dates: end: 20040923
  6. COUMADIN [Concomitant]
     Route: 065
     Dates: start: 20040901
  7. AMBIEN [Concomitant]
     Route: 065
  8. LANTUS [Concomitant]
     Route: 058
  9. [THERAPY UNSPECIFIED] [Concomitant]
     Route: 065

REACTIONS (24)
  - ALANINE AMINOTRANSFERASE INCREASED [None]
  - ANAEMIA [None]
  - ASPARTATE AMINOTRANSFERASE INCREASED [None]
  - ASTHENIA [None]
  - BLOOD CREATINE PHOSPHOKINASE INCREASED [None]
  - BLOOD CREATININE INCREASED [None]
  - BLOOD THYROID STIMULATING HORMONE INCREASED [None]
  - BLOOD UREA INCREASED [None]
  - COLONIC POLYP [None]
  - DIFFICULTY IN WALKING [None]
  - DIVERTICULUM [None]
  - DYSSTASIA [None]
  - EPISTAXIS [None]
  - HEPATIC ENZYME INCREASED [None]
  - HYPOTHYROIDISM [None]
  - INTERNATIONAL NORMALISED RATIO INCREASED [None]
  - LOWER GASTROINTESTINAL HAEMORRHAGE [None]
  - MUSCULOSKELETAL DISCOMFORT [None]
  - MYALGIA [None]
  - MYOSITIS [None]
  - OCCULT BLOOD POSITIVE [None]
  - PROTHROMBIN TIME PROLONGED [None]
  - RED BLOOD CELL COUNT DECREASED [None]
  - RENAL FAILURE [None]
